FAERS Safety Report 10069107 (Version 1)
Quarter: 2014Q2

REPORT INFORMATION
  Report Type: Spontaneous
  Country: FR (occurrence: FR)
  Receive Date: 20140409
  Receipt Date: 20140409
  Transmission Date: 20141212
  Serious: Yes (Hospitalization)
  Sender: FDA-Public Use
  Company Number: PHHY2014FR042089

PATIENT
  Age: 49 Year
  Sex: Male
  Weight: 67 kg

DRUGS (15)
  1. ESIDREX [Suspect]
     Dosage: 25 MG, QD
     Route: 048
  2. BACTRIM [Suspect]
     Dosage: 1 DF, BID
     Route: 048
     Dates: start: 20130610
  3. BACTRIM [Suspect]
     Dosage: (DECREASED  IN HALF)
     Route: 048
  4. OFLOCET [Suspect]
     Indication: INFECTION
     Dosage: 200 MG, BID
     Route: 048
     Dates: start: 20130610
  5. OFLOCET [Suspect]
     Dosage: (DECREASED  IN HALF)
     Route: 048
  6. ATACAND [Suspect]
     Dosage: 32 MG, QD
     Route: 048
  7. ATACAND [Suspect]
     Dosage: 16 MG, UNK
     Route: 048
  8. LANTUS [Concomitant]
     Indication: TYPE 1 DIABETES MELLITUS
     Dosage: 22 IU, QD
     Route: 058
  9. NOVORAPID [Concomitant]
     Indication: TYPE 1 DIABETES MELLITUS
     Dosage: (10 IU, TWICE DAILY  DAILY AND 7IU/DAY)
     Route: 058
  10. LERCAN [Concomitant]
     Dosage: 20 MG, QD
     Route: 048
  11. NEBIVOLOL [Concomitant]
     Dosage: 5 MG, QD
     Route: 048
  12. PLAVIX [Concomitant]
     Dosage: 75 MG, QD
     Route: 048
  13. FOLINORAL [Concomitant]
     Dosage: 5 MG, QD
     Route: 048
  14. PARACETAMOL [Concomitant]
     Dosage: AS NEEDED
  15. ECONAZOLE [Concomitant]
     Dosage: 1 DF, DAILY
     Route: 061

REACTIONS (2)
  - Hyperkalaemia [Recovered/Resolved]
  - Renal failure acute [Recovering/Resolving]
